FAERS Safety Report 4405066-0 (Version None)
Quarter: 2004Q3

REPORT INFORMATION
  Report Type: 
  Country: None (occurrence: None)
  Receive Date: 20040716
  Receipt Date: 20040702
  Transmission Date: 20050211
  Serious: No
  Sender: FDA-Public Use
  Company Number: 2004GB00049

PATIENT
  Age: 82 Year
  Sex: Male

DRUGS (11)
  1. IRESSA [Suspect]
     Indication: COLORECTAL CANCER
     Dosage: 250 MG DAILY PO
     Route: 048
     Dates: start: 20030526, end: 20031124
  2. 5-FLUOROURACIL ^BIOPSYN^ [Suspect]
     Indication: COLORECTAL CANCER
     Dosage: 2800 MG IV
     Route: 042
     Dates: start: 20030609
  3. FLUOROURACIL [Suspect]
     Indication: COLORECTAL CANCER
     Dosage: 400 MG IV
     Route: 042
     Dates: start: 20030609
  4. LEUCOVORIN [Suspect]
     Indication: COLORECTAL CANCER
     Dosage: 175 MG IV
     Route: 042
     Dates: start: 20030609
  5. ASPIRIN [Concomitant]
  6. CANDESARTAN [Concomitant]
  7. ALBUTEROL SULFATE [Concomitant]
  8. TAMSULOSIN [Concomitant]
  9. MAXOLON [Concomitant]
  10. FLIXOTIDE [Concomitant]
  11. BECOTIDE [Concomitant]

REACTIONS (4)
  - DENTAL CARIES [None]
  - GINGIVAL RECESSION [None]
  - MOUTH PLAQUE [None]
  - TOOTH EXTRACTION [None]
